FAERS Safety Report 18645812 (Version 1)
Quarter: 2020Q4

REPORT INFORMATION
  Report Type: Spontaneous
  Country: ES (occurrence: ES)
  Receive Date: 20201222
  Receipt Date: 20201222
  Transmission Date: 20210114
  Serious: Yes (Other)
  Sender: FDA-Public Use
  Company Number: ES-SUN PHARMACEUTICAL INDUSTRIES LTD-2020RR-272197

PATIENT
  Age: 23 Year
  Sex: Female

DRUGS (2)
  1. IMATINIB. [Suspect]
     Active Substance: IMATINIB MESYLATE
     Indication: CHRONIC MYELOID LEUKAEMIA
     Dosage: 400 MILLIGRAM, DAILY
     Route: 065
  2. IMATINIB. [Suspect]
     Active Substance: IMATINIB MESYLATE
     Dosage: 600 MILLIGRAM, DAILY
     Route: 065
     Dates: start: 201106, end: 201401

REACTIONS (6)
  - Gastrointestinal toxicity [Unknown]
  - Haemorrhagic ovarian cyst [Unknown]
  - Haemorrhagic ovarian cyst [Unknown]
  - Haemorrhagic ovarian cyst [Unknown]
  - Weight increased [Unknown]
  - Periorbital oedema [Unknown]

NARRATIVE: CASE EVENT DATE: 201110
